FAERS Safety Report 21307550 (Version 1)
Quarter: 2022Q3

REPORT INFORMATION
  Report Type: Spontaneous
  Country: GB (occurrence: GB)
  Receive Date: 20220908
  Receipt Date: 20220908
  Transmission Date: 20221026
  Serious: Yes (Disabling)
  Sender: FDA-Public Use
  Company Number: GB-MHRA-MED-202208280857331030-GVWKP

PATIENT
  Age: 37 Year
  Sex: Female
  Weight: 70 kg

DRUGS (2)
  1. MIRTAZAPINE [Suspect]
     Active Substance: MIRTAZAPINE
     Indication: Anxiety
     Dosage: 15;
     Route: 065
     Dates: start: 20220827, end: 20220828
  2. CITALOPRAM [Concomitant]
     Active Substance: CITALOPRAM HYDROBROMIDE
     Indication: Depression
     Dates: start: 20140103

REACTIONS (3)
  - Illiteracy [Recovering/Resolving]
  - Neuralgia [Recovering/Resolving]
  - Alcohol poisoning [Recovered/Resolved with Sequelae]

NARRATIVE: CASE EVENT DATE: 20220827
